FAERS Safety Report 11164908 (Version 1)
Quarter: 2015Q2

REPORT INFORMATION
  Report Type: Spontaneous
  Country: US (occurrence: None)
  Receive Date: 20150603
  Receipt Date: 20150603
  Transmission Date: 20150821
  Serious: Yes (Hospitalization)
  Sender: FDA-Public Use
  Company Number: None

PATIENT
  Age: 53 Year
  Sex: Male
  Weight: 73.94 kg

DRUGS (17)
  1. HARVONI [Suspect]
     Active Substance: LEDIPASVIR\SOFOSBUVIR
     Indication: HEPATITIS C
     Route: 048
     Dates: start: 20150225, end: 20150425
  2. SPIRONOLACTONE. [Concomitant]
     Active Substance: SPIRONOLACTONE
  3. CITALOPRAM [Concomitant]
     Active Substance: CITALOPRAM HYDROBROMIDE
  4. FUROSEMIDE. [Concomitant]
     Active Substance: FUROSEMIDE
  5. TAMSULOSIN [Concomitant]
     Active Substance: TAMSULOSIN
  6. METOPROLOL [Concomitant]
     Active Substance: METOPROLOL
  7. LANTUS [Concomitant]
     Active Substance: INSULIN GLARGINE
  8. ALBUMIN [Concomitant]
     Active Substance: ALBUMIN (HUMAN)
  9. NITROGLYCERIN. [Concomitant]
     Active Substance: NITROGLYCERIN
  10. PRAVASTATIN [Concomitant]
     Active Substance: PRAVASTATIN\PRAVASTATIN SODIUM
  11. OMEPRAZOLE. [Concomitant]
     Active Substance: OMEPRAZOLE
  12. CIPROFLOXACIN. [Concomitant]
     Active Substance: CIPROFLOXACIN
  13. OXCARBAZAPINE [Concomitant]
     Active Substance: OXCARBAZEPINE
  14. HYDROXYZINE [Concomitant]
     Active Substance: HYDROXYZINE\HYDROXYZINE HYDROCHLORIDE
  15. RIFAXIMIN [Concomitant]
     Active Substance: RIFAXIMIN
  16. NADOLOL. [Concomitant]
     Active Substance: NADOLOL
  17. DOXYCYCLINE. [Concomitant]
     Active Substance: DOXYCYCLINE

REACTIONS (1)
  - Chest pain [None]

NARRATIVE: CASE EVENT DATE: 20150506
